FAERS Safety Report 10074370 (Version 1)
Quarter: 2014Q2

REPORT INFORMATION
  Report Type: Spontaneous
  Country: US (occurrence: US)
  Receive Date: 20140411
  Receipt Date: 20140411
  Transmission Date: 20141212
  Serious: No
  Sender: FDA-Public Use
  Company Number: US-SANOFI-AVENTIS-2013SA062195

PATIENT
  Age: 40 Year
  Sex: Female

DRUGS (3)
  1. ALLEGRA D [Suspect]
     Indication: HYPERSENSITIVITY
     Dosage: DOSE: 60/120 MG
     Route: 048
     Dates: start: 20130607
  2. ALLEGRA D [Suspect]
     Indication: HYPERSENSITIVITY
     Dosage: 60MG / 120 MG
     Route: 048
     Dates: start: 20130607, end: 20130609
  3. ZYRTEC [Concomitant]

REACTIONS (2)
  - Eye swelling [Not Recovered/Not Resolved]
  - Sleep disorder [Not Recovered/Not Resolved]
